FAERS Safety Report 22590011 (Version 5)
Quarter: 2025Q3

REPORT INFORMATION
  Report Type: Spontaneous
  Country: US (occurrence: US)
  Receive Date: 20230612
  Receipt Date: 20250916
  Transmission Date: 20251021
  Serious: No
  Sender: SANOFI AVENTIS
  Company Number: US-SA-SAC20230608001316

PATIENT
  Age: 16 Year
  Sex: Male

DRUGS (5)
  1. XENPOZYME [Suspect]
     Active Substance: OLIPUDASE ALFA-RPCP
     Indication: Niemann-Pick disease
     Dosage: 190 MG, QOW
     Route: 042
     Dates: start: 202304, end: 2023
  2. XENPOZYME [Suspect]
     Active Substance: OLIPUDASE ALFA-RPCP
     Route: 042
     Dates: start: 202305, end: 2023
  3. XENPOZYME [Suspect]
     Active Substance: OLIPUDASE ALFA-RPCP
     Dosage: 188 MG (IN 250 ML OF NORMAL SALINE (TOTAL VOLUME), QOW
     Route: 042
     Dates: start: 2023
  4. XENPOZYME [Suspect]
     Active Substance: OLIPUDASE ALFA-RPCP
     Dosage: 200 MG (IN 250 ML OF NORMAL SALINE (TOTAL VOLUME)), QOW OVER 3.5 HOURS VIA INFUSION PUMP
     Route: 042
  5. XENPOZYME [Suspect]
     Active Substance: OLIPUDASE ALFA-RPCP
     Dosage: 220 MG, QOW
     Route: 042

REACTIONS (3)
  - Weight increased [Recovering/Resolving]
  - Headache [Recovered/Resolved]
  - Incorrect dose administered [Unknown]

NARRATIVE: CASE EVENT DATE: 20230401
